FAERS Safety Report 4994305-3 (Version None)
Quarter: 2006Q2

REPORT INFORMATION
  Report Type: 
  Country: None (occurrence: None)
  Receive Date: 20060503
  Receipt Date: 20060425
  Transmission Date: 20061013
  Serious: Yes (Death)
  Sender: FDA-Public Use
  Company Number: FR200604004063

PATIENT
  Age: 33 Year
  Sex: Male

DRUGS (3)
  1. ZYPREXA [Suspect]
     Dosage: ORAL
     Route: 048
     Dates: start: 20040101
  2. TERCIAN (CYAMEMAZINE) [Concomitant]
  3. PARKINANE (TRIHEXYPHENIDYL HYDROCHLORIDE) [Concomitant]

REACTIONS (3)
  - CARDIO-RESPIRATORY ARREST [None]
  - MALAISE [None]
  - MYOCARDIAL INFARCTION [None]
